FAERS Safety Report 12475078 (Version 2)
Quarter: 2016Q4

REPORT INFORMATION
  Report Type: Spontaneous
  Country: GB (occurrence: GB)
  Receive Date: 20160617
  Receipt Date: 20161115
  Transmission Date: 20170207
  Serious: Yes (Other)
  Sender: FDA-Public Use
  Company Number: GB-AUROBINDO-AUR-APL-2016-07485

PATIENT
  Age: 25 Year
  Sex: Male
  Weight: 100 kg

DRUGS (2)
  1. MIRTAZAPINE 15MG [Suspect]
     Active Substance: MIRTAZAPINE
     Indication: SCHIZOAFFECTIVE DISORDER
     Dosage: 15 MG, ONCE A DAY
     Route: 048
     Dates: start: 20160511
  2. MIRTAZAPINE 15MG [Suspect]
     Active Substance: MIRTAZAPINE
     Indication: INSOMNIA
     Dosage: 4 DF, UNK
     Route: 065
     Dates: start: 20160529, end: 20160529

REACTIONS (10)
  - Agitation [Not Recovered/Not Resolved]
  - Delusion of grandeur [Not Recovered/Not Resolved]
  - Psychotic disorder [Unknown]
  - Intentional product misuse [Unknown]
  - Dissociation [Unknown]
  - Homicidal ideation [Unknown]
  - Mood altered [Unknown]
  - Visual impairment [Unknown]
  - Condition aggravated [Unknown]
  - Anger [Not Recovered/Not Resolved]

NARRATIVE: CASE EVENT DATE: 20160518
